FAERS Safety Report 4708180-5 (Version None)
Quarter: 2005Q3

REPORT INFORMATION
  Report Type: 
  Country: None (occurrence: None)
  Receive Date: 20050705
  Receipt Date: 20050705
  Transmission Date: 20060218
  Serious: Yes (Hospitalization)
  Sender: FDA-Public Use
  Company Number: None

PATIENT
  Sex: Female

DRUGS (6)
  1. VELCADE [Suspect]
     Dosage: 2.5 MG IV ON 0.4 DAY
     Route: 042
     Dates: start: 20040411
  2. VELCADE [Suspect]
     Dosage: 2.5 MG IV ON 0.4 DAY
     Route: 042
     Dates: start: 20040414
  3. VELCADE [Suspect]
     Dosage: 2.5 MG IV ON 0.4 DAY
     Route: 042
     Dates: start: 20050322
  4. VELCADE [Suspect]
     Dosage: 2.5 MG IV ON 0.4 DAY
     Route: 042
     Dates: start: 20050325
  5. VELCADE [Suspect]
     Dosage: 2.5 MG IV ON 0.4 DAY
     Route: 042
     Dates: start: 20050502
  6. VELCADE [Suspect]
     Dosage: 2.5 MG IV ON 0.4 DAY
     Route: 042
     Dates: start: 20050505

REACTIONS (8)
  - ANAEMIA [None]
  - DIARRHOEA [None]
  - DIZZINESS [None]
  - HERPES ZOSTER [None]
  - HYPOVOLAEMIA [None]
  - ORTHOSTATIC HYPOTENSION [None]
  - VOMITING [None]
  - WHITE BLOOD CELL COUNT INCREASED [None]
